FAERS Safety Report 23856988 (Version 2)
Quarter: 2024Q2

REPORT INFORMATION
  Report Type: Spontaneous
  Country: TR (occurrence: TR)
  Receive Date: 20240515
  Receipt Date: 20240613
  Transmission Date: 20240716
  Serious: Yes (Other)
  Sender: FDA-Public Use
  Company Number: TR-ABBVIE-5756479

PATIENT
  Age: 19 Year
  Sex: Female

DRUGS (1)
  1. RINVOQ [Suspect]
     Active Substance: UPADACITINIB
     Indication: Crohn^s disease
     Dosage: FORM STRENGTH: 15 MILLIGRAM, 3 TIMES PER DAY
     Route: 048
     Dates: start: 20240404

REACTIONS (2)
  - Vasculitis [Unknown]
  - Rash [Unknown]

NARRATIVE: CASE EVENT DATE: 20240101
